FAERS Safety Report 18754105 (Version 1)
Quarter: 2021Q1

REPORT INFORMATION
  Report Type: Spontaneous
  Country: US (occurrence: US)
  Receive Date: 20210119
  Receipt Date: 20210119
  Transmission Date: 20210419
  Serious: Yes (Hospitalization)
  Sender: FDA-Public Use
  Company Number: US-BRISTOL-MYERS SQUIBB COMPANY-BMS-2021-003314

PATIENT
  Age: 74 Year
  Sex: Male

DRUGS (3)
  1. ELIQUIS [Suspect]
     Active Substance: APIXABAN
     Indication: PRODUCT USED FOR UNKNOWN INDICATION
     Route: 065
  2. OFEV [Suspect]
     Active Substance: NINTEDANIB
     Indication: IDIOPATHIC PULMONARY FIBROSIS
     Dosage: 300 MILLIGRAM, (150 MILLIGRAM, 1 IN 0.5 DAY)
     Route: 048
     Dates: start: 20200210
  3. OFEV [Suspect]
     Active Substance: NINTEDANIB
     Dosage: 150.0 MG MILLIGRAM(S) ( 150 MG MILLIGRAM(S) )J1 IN 1IDAY
     Route: 048

REACTIONS (3)
  - Diarrhoea [Unknown]
  - Cardiac disorder [Unknown]
  - Blood viscosity abnormal [Unknown]

NARRATIVE: CASE EVENT DATE: 20200817
